FAERS Safety Report 5478284-0 (Version None)
Quarter: 2007Q4

REPORT INFORMATION
  Report Type: 
  Country: None (occurrence: None)
  Receive Date: 20071005
  Receipt Date: 20071002
  Transmission Date: 20080405
  Serious: Yes (Other)
  Sender: FDA-Public Use
  Company Number: JP-AVENTIS-200712624JP

PATIENT

DRUGS (2)
  1. GLYBURIDE [Suspect]
     Route: 048
  2. UNKNOWN DRUG [Concomitant]

REACTIONS (2)
  - PYREXIA [None]
  - RHABDOMYOLYSIS [None]
